FAERS Safety Report 7599556-X (Version None)
Quarter: 2011Q3

REPORT INFORMATION
  Report Type: 
  Country: None (occurrence: None)
  Receive Date: 20110711
  Receipt Date: 20091211
  Transmission Date: 20111222
  Serious: No
  Sender: FDA-Public Use
  Company Number: 2009BI041938

PATIENT
  Sex: Female

DRUGS (8)
  1. TYSABRI [Suspect]
     Indication: MULTIPLE SCLEROSIS
     Route: 042
     Dates: start: 20041101, end: 20050224
  2. BACLOFEN [Concomitant]
     Indication: MUSCLE SPASMS
  3. ZYRTEC [Concomitant]
     Indication: SEASONAL ALLERGY
  4. KLONOPIN [Concomitant]
     Indication: ANXIETY
  5. KLONOPIN [Concomitant]
     Indication: MUSCLE SPASMS
  6. WELLBUTRIN [Concomitant]
     Indication: FATIGUE
  7. WELLBUTRIN [Concomitant]
     Indication: DEPRESSION
  8. TYSABRI [Suspect]
     Route: 042
     Dates: start: 20071024, end: 20080714

REACTIONS (6)
  - IMPAIRED DRIVING ABILITY [None]
  - VISUAL IMPAIRMENT [None]
  - COGNITIVE DISORDER [None]
  - DEPRESSED MOOD [None]
  - NUCLEAR MAGNETIC RESONANCE IMAGING ABNORMAL [None]
  - DRUG INEFFECTIVE [None]
